FAERS Safety Report 10909015 (Version 1)
Quarter: 2015Q1

REPORT INFORMATION
  Report Type: Spontaneous
  Country: US (occurrence: US)
  Receive Date: 20150312
  Receipt Date: 20150312
  Transmission Date: 20150721
  Serious: No
  Sender: FDA-Public Use
  Company Number: US-SA-2014SA024860

PATIENT
  Age: 83 Year
  Sex: Male
  Weight: 95.25 kg

DRUGS (3)
  1. SALINE [Concomitant]
     Active Substance: SODIUM CHLORIDE
  2. ALL OTHER THERAPEUTIC PRODUCTS [Concomitant]
     Active Substance: UNSPECIFIED INGREDIENT
  3. NASACORT ALLERGY 24HR [Suspect]
     Active Substance: TRIAMCINOLONE ACETONIDE
     Indication: RHINORRHOEA
     Dosage: PRODUCT START DATE: 3 WEEK AGO?DOSE: 2 SPRAYS A DAY
     Route: 065
     Dates: start: 20140110, end: 20140225

REACTIONS (1)
  - Drug ineffective [Unknown]
